FAERS Safety Report 6420742-6 (Version None)
Quarter: 2009Q4

REPORT INFORMATION
  Report Type: 
  Country: None (occurrence: None)
  Receive Date: 20091030
  Receipt Date: 20091021
  Transmission Date: 20100525
  Serious: Yes (Hospitalization, Other)
  Sender: FDA-Public Use
  Company Number: US-BIOGENIDEC-2006BI014691

PATIENT
  Age: 58 Year
  Sex: Female
  Weight: 81 kg

DRUGS (4)
  1. AVONEX [Suspect]
     Indication: MULTIPLE SCLEROSIS
     Route: 030
     Dates: start: 20040624
  2. AVONEX [Suspect]
     Route: 030
     Dates: start: 20040624
  3. AVONEX [Suspect]
     Route: 030
     Dates: start: 20040624
  4. AVONEX [Suspect]
     Route: 030
     Dates: start: 20040624

REACTIONS (4)
  - GASTRIC CANCER [None]
  - LUNG NEOPLASM MALIGNANT [None]
  - RECTAL HAEMORRHAGE [None]
  - RENAL CANCER [None]
